FAERS Safety Report 9513924 (Version 2)
Quarter: 2014Q1

REPORT INFORMATION
  Report Type: Spontaneous
  Country: US (occurrence: US)
  Receive Date: 20130910
  Receipt Date: 20140321
  Transmission Date: 20141002
  Serious: Yes (Hospitalization, Other)
  Sender: FDA-Public Use
  Company Number: US-B.I. PHARMACEUTICALS,INC./RIDGEFIELD-2013-BI-27291BP

PATIENT
  Age: 65 Year
  Sex: Male
  Weight: 95.2 kg

DRUGS (11)
  1. PRADAXA [Suspect]
     Indication: ATRIAL FIBRILLATION
     Dosage: 300 MG
     Route: 048
     Dates: start: 20120707, end: 20120802
  2. CYCLOBENZAPRINE HYDROCHLORIDE [Concomitant]
     Route: 065
     Dates: start: 200402
  3. CYMBALTA [Concomitant]
     Route: 065
     Dates: start: 200902
  4. AMIODARONE [Concomitant]
     Route: 065
     Dates: start: 201202
  5. HYDROCHLOROTHIAZIDE [Concomitant]
     Route: 065
     Dates: start: 200402
  6. TESTOSTERONE [Concomitant]
     Route: 065
     Dates: start: 200402
  7. ZOLPIDEM [Concomitant]
     Route: 065
     Dates: start: 200902
  8. PRAVASTATIN SODIUM [Concomitant]
     Route: 065
     Dates: start: 200502
  9. AMLODIPINE BESYLATE [Concomitant]
     Route: 065
     Dates: start: 201202
  10. NOVOLOG FLEXPEN [Concomitant]
     Route: 065
     Dates: start: 200502
  11. LEVEMIR FLEXPIN [Concomitant]
     Route: 065
     Dates: start: 200502

REACTIONS (2)
  - Gastrointestinal haemorrhage [Unknown]
  - Anaemia [Unknown]
